FAERS Safety Report 4805109-6 (Version None)
Quarter: 2005Q4

REPORT INFORMATION
  Report Type: 
  Country: None (occurrence: None)
  Receive Date: 20051017
  Receipt Date: 20051003
  Transmission Date: 20060501
  Serious: Yes (Hospitalization)
  Sender: FDA-Public Use
  Company Number: 2005BI010345

PATIENT
  Age: 29 Year
  Sex: Female

DRUGS (7)
  1. AVONEX [Suspect]
     Indication: MULTIPLE SCLEROSIS
     Dosage: 30 UG;
     Dates: start: 20041126
  2. NEURONTIN [Concomitant]
  3. PREVACID [Concomitant]
  4. WELLBUTRIN XL [Concomitant]
  5. AVANDIA [Concomitant]
  6. LEXAPRO [Concomitant]
  7. HUMALOG [Concomitant]

REACTIONS (5)
  - CERVICAL VERTEBRAL FRACTURE [None]
  - CHOLECYSTITIS [None]
  - CHOLELITHIASIS [None]
  - ROAD TRAFFIC ACCIDENT [None]
  - SPINAL FRACTURE [None]
